FAERS Safety Report 9470821 (Version 1)
Quarter: 2013Q3

REPORT INFORMATION
  Report Type: Spontaneous
  Country: US (occurrence: None)
  Receive Date: 20130820
  Receipt Date: 20130820
  Transmission Date: 20140515
  Serious: Yes (Other)
  Sender: FDA-Public Use
  Company Number: None

PATIENT
  Age: 54 Year
  Sex: Female
  Weight: 110.68 kg

DRUGS (22)
  1. LEVALBUTEROL [Suspect]
     Indication: CHRONIC OBSTRUCTIVE PULMONARY DISEASE
     Dosage: 1.25 MG 3 ML VIAL ONCE A DAY NEBULIZER MEDICATION
     Dates: start: 20130723, end: 20130724
  2. LEVALBUTEROL [Suspect]
     Indication: EMPHYSEMA
     Dosage: 1.25 MG 3 ML VIAL ONCE A DAY NEBULIZER MEDICATION
     Dates: start: 20130723, end: 20130724
  3. FISH OIL [Concomitant]
  4. VITAMIN E [Concomitant]
  5. ASPIRIN [Concomitant]
  6. KLOR-CON [Concomitant]
  7. METOPROLOL [Concomitant]
  8. DEPAKOTE [Concomitant]
  9. BENZONATE [Concomitant]
  10. BAYER ASPIRIN [Concomitant]
  11. PRAVASTIN SODIUM [Concomitant]
  12. ABILIFY [Concomitant]
  13. LEVOTHYROXINE [Concomitant]
  14. CYMBALTA [Concomitant]
  15. FUROSEMIDE [Concomitant]
  16. METFORMIN [Concomitant]
  17. NEXIUM [Concomitant]
  18. DALIRESP [Concomitant]
  19. VICODEN [Concomitant]
  20. SPIRIVA [Concomitant]
  21. SYMBICORT [Concomitant]
  22. ALBUTEROL [Concomitant]

REACTIONS (6)
  - Malaise [None]
  - Dyspnoea [None]
  - Rash [None]
  - Urticaria [None]
  - Pruritus [None]
  - Product substitution issue [None]
